FAERS Safety Report 13615509 (Version 1)
Quarter: 2017Q2

REPORT INFORMATION
  Report Type: Other
  Country: IT (occurrence: IT)
  Receive Date: 20170606
  Receipt Date: 20170606
  Transmission Date: 20170830
  Serious: Yes (Hospitalization, Other)
  Sender: FDA-Public Use
  Company Number: IT-ACTELION-A-CH2017-154376

PATIENT
  Age: 31 Year
  Sex: Male

DRUGS (3)
  1. BOSENTAN. [Suspect]
     Active Substance: BOSENTAN
     Indication: PULMONARY HYPERTENSION
     Route: 048
  2. OXYGEN. [Concomitant]
     Active Substance: OXYGEN
     Indication: PRODUCT USED FOR UNKNOWN INDICATION
  3. VENTAVIS [Concomitant]
     Active Substance: ILOPROST
     Indication: PULMONARY HYPERTENSION
     Route: 055

REACTIONS (7)
  - Cardiac failure acute [Unknown]
  - Pulmonary haemorrhage [Unknown]
  - Plasmapheresis [Unknown]
  - Rash erythematous [Unknown]
  - Acute respiratory failure [Unknown]
  - Pulmonary hypertension [Unknown]
  - Alveolitis [Unknown]
